FAERS Safety Report 5392897-6 (Version None)
Quarter: 2007Q3

REPORT INFORMATION
  Report Type: 
  Country: None (occurrence: None)
  Receive Date: 20070721
  Receipt Date: 20070710
  Transmission Date: 20080115
  Serious: Yes (Other)
  Sender: FDA-Public Use
  Company Number: US-PFIZER INC-2007058229

PATIENT
  Sex: Female
  Weight: 59.09 kg

DRUGS (11)
  1. CHANTIX [Interacting]
     Indication: SMOKING CESSATION THERAPY
     Dates: start: 20070201, end: 20070101
  2. PREDNISONE [Interacting]
  3. ONDANSETRON [Suspect]
     Indication: NAUSEA
     Dosage: TEXT:4MG
  4. ONDANSETRON [Suspect]
     Indication: DECREASED APPETITE
  5. XANAX [Concomitant]
     Route: 048
  6. PROTONIX [Concomitant]
  7. ELAVIL [Concomitant]
  8. SPIRIVA [Concomitant]
  9. IPRATROPIUM BROMIDE [Concomitant]
     Indication: CHRONIC OBSTRUCTIVE PULMONARY DISEASE
  10. IMURAN [Concomitant]
  11. FOLIC ACID [Concomitant]
     Route: 048

REACTIONS (8)
  - ANOREXIA [None]
  - DRUG INTERACTION [None]
  - DYSURIA [None]
  - NAUSEA [None]
  - SERUM SEROTONIN DECREASED [None]
  - SERUM SEROTONIN INCREASED [None]
  - SYSTEMIC LUPUS ERYTHEMATOSUS [None]
  - WEIGHT DECREASED [None]
